FAERS Safety Report 9532274 (Version 1)
Quarter: 2013Q2

REPORT INFORMATION
  Report Type: Spontaneous
  Country: US (occurrence: None)
  Receive Date: 20130403
  Receipt Date: 20130403
  Transmission Date: 20140414
  Serious: No
  Sender: FDA-Public Use
  Company Number: US-2012-10289

PATIENT
  Age: 27 Year
  Sex: Male
  Weight: 60 kg

DRUGS (8)
  1. BUSULFEX [Suspect]
     Indication: STEM CELL TRANSPLANT
     Route: 042
     Dates: start: 20111115
  2. CYCLOPHOSPHAMIDE (CYCLOPHOSPHAMIDE) [Suspect]
     Indication: STEM CELL TRANSPLANT
     Route: 042
     Dates: start: 20111121, end: 20111122
  3. NEORAL (CICLOSPORIN) [Concomitant]
  4. CORTANCYL (PREDNISONE) [Concomitant]
  5. ZELITREX (VALACICLOVIR HYDROCHLORIDE) [Concomitant]
  6. WELLVONE (ATOVAQUONE) [Concomitant]
  7. VFEND (VORICONAZOLE) [Concomitant]
  8. RANITIDINE (RANITIDINE HYDROCHLORIDE) [Concomitant]

REACTIONS (1)
  - Sinusitis [None]
